FAERS Safety Report 25319210 (Version 1)
Quarter: 2025Q2

REPORT INFORMATION
  Report Type: Spontaneous
  Country: US (occurrence: US)
  Receive Date: 20250515
  Receipt Date: 20250515
  Transmission Date: 20250716
  Serious: Yes (Hospitalization, Other)
  Sender: GUERBET
  Company Number: US-GUERBET / LLC-US-20250086

PATIENT
  Age: 15 Year
  Sex: Female
  Weight: 64.8 kg

DRUGS (1)
  1. ELUCIREM [Suspect]
     Active Substance: GADOPICLENOL
     Indication: Scan with contrast
     Route: 042
     Dates: start: 20250427, end: 20250427

REACTIONS (3)
  - Nasal congestion [Recovered/Resolved]
  - Chest discomfort [Recovered/Resolved]
  - Throat tightness [Recovered/Resolved]

NARRATIVE: CASE EVENT DATE: 20250427
